FAERS Safety Report 7324603-X (Version None)
Quarter: 2011Q1

REPORT INFORMATION
  Report Type: 
  Country: None (occurrence: None)
  Receive Date: 20110201
  Receipt Date: 20110119
  Transmission Date: 20110831
  Serious: Yes (Hospitalization, Other)
  Sender: FDA-Public Use
  Company Number: COM11-0099

PATIENT
  Age: 67 Year
  Sex: Female
  Weight: 79 kg

DRUGS (8)
  1. PAMELOR [Concomitant]
  2. FUROSEMIDE [Concomitant]
  3. VESICARE [Concomitant]
  4. ACTONEL [Concomitant]
  5. LIPITOR [Concomitant]
  6. CARISOPRODOL [Concomitant]
  7. LISINOPRIL [Suspect]
     Indication: HYPERTENSION
     Dosage: 20MG PO QD
     Route: 048
     Dates: start: 20100627, end: 20101207
  8. POTASSIUM [Concomitant]

REACTIONS (1)
  - ANAPHYLACTIC REACTION [None]
